FAERS Safety Report 4670369-1 (Version None)
Quarter: 2005Q2

REPORT INFORMATION
  Report Type: 
  Country: None (occurrence: None)
  Receive Date: 20050520
  Receipt Date: 20050509
  Transmission Date: 20051028
  Serious: Yes (Hospitalization)
  Sender: FDA-Public Use
  Company Number: HQWYE600609MAY05

PATIENT
  Age: 40 Year
  Sex: Female

DRUGS (3)
  1. LIBIAN-28 [Suspect]
     Indication: DYSMENORRHOEA
     Dosage: 1 TABLET 1 X PER 1D
     Route: 048
     Dates: start: 20011101, end: 20030510
  2. LIBIAN-28 [Suspect]
     Indication: DYSMENORRHOEA
     Dosage: 1 TABLET 1 X PER 1D
     Route: 048
     Dates: start: 20031027
  3. FERROMIA         (FERROUS CITRATE) [Concomitant]

REACTIONS (3)
  - CONDITION AGGRAVATED [None]
  - UTERINE LEIOMYOMA [None]
  - VAGINAL HAEMORRHAGE [None]
